FAERS Safety Report 13611776 (Version 1)
Quarter: 2017Q2

REPORT INFORMATION
  Report Type: Report from Study
  Country: None (occurrence: BR)
  Receive Date: 20170605
  Receipt Date: 20170605
  Transmission Date: 20170830
  Serious: Yes (Other)
  Sender: FDA-Public Use
  Company Number: BR-ABBVIE-17P-020-1914489-00

PATIENT
  Age: 71 Year
  Sex: Female
  Weight: 53 kg

DRUGS (4)
  1. ENALAPRIL MALEATE. [Concomitant]
     Active Substance: ENALAPRIL MALEATE
     Indication: BLOOD PRESSURE ABNORMAL
     Route: 048
     Dates: start: 2015
  2. HUMIRA [Suspect]
     Active Substance: ADALIMUMAB
     Route: 058
  3. HUMIRA [Suspect]
     Active Substance: ADALIMUMAB
     Indication: CROHN^S DISEASE
     Route: 058
     Dates: start: 20140630
  4. GLIFAGE [Concomitant]
     Active Substance: METFORMIN HYDROCHLORIDE
     Indication: DIABETES MELLITUS
     Route: 048

REACTIONS (8)
  - Fistula [Unknown]
  - Gastrointestinal infection [Recovering/Resolving]
  - Rectal discharge [Not Recovered/Not Resolved]
  - Memory impairment [Not Recovered/Not Resolved]
  - Intestinal mass [Recovering/Resolving]
  - Surgery [Unknown]
  - Pyrexia [Recovering/Resolving]
  - Rectal obstruction [Not Recovered/Not Resolved]

NARRATIVE: CASE EVENT DATE: 20170317
